FAERS Safety Report 8590773-9 (Version None)
Quarter: 2012Q3

REPORT INFORMATION
  Report Type: 
  Country: None (occurrence: None)
  Receive Date: 20120731
  Receipt Date: 20120720
  Transmission Date: 20120928
  Serious: Yes (Other)
  Sender: FDA-Public Use
  Company Number: 1361629

PATIENT
  Age: 41 Year
  Sex: Female

DRUGS (3)
  1. CYTARABINE [Suspect]
     Indication: ACUTE MYELOID LEUKAEMIA
     Dosage: 100 MG/M^2, UNKNOWN, UNKNOWN 2 Q/M^2, UNKNOWN
  2. DAUNORUBICIN HCL [Suspect]
     Indication: ACUTE MYELOID LEUKAEMIA
     Dosage: 45 MG/M^2, UNKNOWN, UNKNOWN
  3. DESOGESTREL AND ETHINYL ESTRADIOL [Concomitant]

REACTIONS (5)
  - UTERINE HAEMORRHAGE [None]
  - PALLOR [None]
  - PANCYTOPENIA [None]
  - UTERINE LEIOMYOMA [None]
  - TACHYCARDIA [None]
